FAERS Safety Report 8798289 (Version 2)
Quarter: 2012Q4

REPORT INFORMATION
  Report Type: Report from Study
  Country: CA (occurrence: CA)
  Receive Date: 20120920
  Receipt Date: 20121011
  Transmission Date: 20130627
  Serious: Yes (Other)
  Sender: FDA-Public Use
  Company Number: CA-ROCHE-1124028

PATIENT
  Age: 50 Year
  Sex: Female
  Weight: 68.1 kg

DRUGS (8)
  1. ROACTEMRA [Suspect]
     Indication: RHEUMATOID ARTHRITIS
     Route: 042
     Dates: start: 20101112
  2. ROACTEMRA [Suspect]
     Route: 042
     Dates: start: 20101018
  3. ROACTEMRA [Suspect]
     Route: 042
     Dates: start: 20101112, end: 20111031
  4. ROACTEMRA [Suspect]
     Route: 042
     Dates: start: 20101213
  5. ROACTEMRA [Suspect]
     Route: 042
     Dates: start: 20110207
  6. ROACTEMRA [Suspect]
     Route: 042
     Dates: start: 20111031, end: 20111031
  7. FOLIC ACID [Concomitant]
  8. TYLENOL [Concomitant]

REACTIONS (2)
  - Bronchiectasis [Unknown]
  - Liver function test abnormal [Not Recovered/Not Resolved]
